FAERS Safety Report 5067850-2 (Version None)
Quarter: 2006Q3

REPORT INFORMATION
  Report Type: 
  Country: None (occurrence: None)
  Receive Date: 20060728
  Receipt Date: 20060713
  Transmission Date: 20061208
  Serious: Yes (Hospitalization)
  Sender: FDA-Public Use
  Company Number: CA200607002589

PATIENT
  Age: 56 Year
  Sex: Female

DRUGS (6)
  1. FORTEO [Suspect]
     Indication: OSTEOPOROSIS
     Dosage: 20 UG DAILY (1/D)
     Dates: start: 20051215
  2. FORTEO PEN (FORTEO PEN) [Concomitant]
  3. INTERFERON BETA (INTERFERON BETA) [Concomitant]
  4. MESALAMINE [Concomitant]
  5. PAROXETINE HCL [Concomitant]
  6. SENNA(SENNA) [Concomitant]

REACTIONS (1)
  - CROHN'S DISEASE [None]
